FAERS Safety Report 7435307-7 (Version None)
Quarter: 2011Q2

REPORT INFORMATION
  Report Type: 
  Country: None (occurrence: None)
  Receive Date: 20110425
  Receipt Date: 20110414
  Transmission Date: 20111010
  Serious: Yes (Death, Other)
  Sender: FDA-Public Use
  Company Number: JP-AMGEN-JPNCT2011016052

PATIENT
  Age: 68 Year
  Sex: Female
  Weight: 40 kg

DRUGS (8)
  1. CAMPTOSAR [Suspect]
     Indication: COLORECTAL CANCER
     Route: 041
     Dates: start: 20100901
  2. FLUOROURACIL [Concomitant]
     Route: 041
     Dates: start: 20100901
  3. CORTICOSTEROIDS [Concomitant]
     Indication: PROPHYLAXIS
     Dosage: UNK
  4. PANITUMUMAB [Suspect]
     Indication: COLORECTAL CANCER
     Dosage: 6 MG/KG, Q2WK
     Route: 041
     Dates: start: 20100728
  5. FLUOROURACIL [Concomitant]
     Indication: COLORECTAL CANCER
     Route: 040
     Dates: start: 20100901
  6. LOPEMIN [Concomitant]
     Dosage: UNK
     Route: 048
  7. LOXOPROFEN [Concomitant]
     Dosage: UNK
     Route: 048
  8. CALCIUM LEVOFOLINATE [Concomitant]
     Indication: COLORECTAL CANCER
     Route: 041
     Dates: start: 20100901

REACTIONS (7)
  - DECREASED APPETITE [None]
  - DRY SKIN [None]
  - STOMATITIS [None]
  - COLORECTAL CANCER [None]
  - DRY MOUTH [None]
  - RASH [None]
  - DIARRHOEA [None]
